FAERS Safety Report 7830499-X (Version None)
Quarter: 2011Q3

REPORT INFORMATION
  Report Type: 
  Country: None (occurrence: None)
  Receive Date: 20110901
  Receipt Date: 20100816
  Transmission Date: 20111222
  Serious: Yes (Other)
  Sender: FDA-Public Use
  Company Number: 245296USA

PATIENT
  Sex: Male

DRUGS (1)
  1. METOCLOPRAMIDE [Suspect]
     Dosage: 10 MG
     Dates: start: 20020201, end: 20090201

REACTIONS (3)
  - BRADYKINESIA [None]
  - TREMOR [None]
  - MASKED FACIES [None]
